FAERS Safety Report 21230620 (Version 1)
Quarter: 2022Q3

REPORT INFORMATION
  Report Type: Report from Study
  Country: NL (occurrence: NL)
  Receive Date: 20220818
  Receipt Date: 20220818
  Transmission Date: 20221027
  Serious: Yes (Death)
  Sender: FDA-Public Use
  Company Number: NL-TEVA-2022-NL-2064276

PATIENT

DRUGS (3)
  1. DEXAMETHASONE [Suspect]
     Active Substance: DEXAMETHASONE
     Indication: Subdural haematoma
     Dosage: 16 MILLIGRAM DAILY; ON DAY 1 TO 7
     Route: 065
  2. DEXAMETHASONE [Suspect]
     Active Substance: DEXAMETHASONE
     Dosage: TAPERED BY HALF EVERY 3 DAYS UNTIL A DOSAGE OF 0.5 MG ONCE DAILY ON DAYS 20-22 AND ENDED ON DAY 23
     Route: 065
  3. DEXAMETHASONE [Suspect]
     Active Substance: DEXAMETHASONE
     Dosage: .5 MILLIGRAM DAILY; ON DAY 20 TO 22
     Route: 065

REACTIONS (2)
  - Pneumonia [Fatal]
  - Sepsis [Fatal]
